FAERS Safety Report 5045735-5 (Version None)
Quarter: 2006Q2

REPORT INFORMATION
  Report Type: 
  Country: None (occurrence: None)
  Receive Date: 20060601
  Receipt Date: 20060324
  Transmission Date: 20061013
  Serious: No
  Sender: FDA-Public Use
  Company Number: 2006-BP-00169BP

PATIENT
  Sex: Female

DRUGS (5)
  1. SPIRIVA [Suspect]
     Indication: ASTHMA
     Dosage: 18 MCG (18 MCG,1 IN 1 D),IH
     Dates: start: 20051201
  2. SPIRIVA [Suspect]
     Indication: EMPHYSEMA
     Dosage: 18 MCG (18 MCG,1 IN 1 D),IH
     Dates: start: 20051201
  3. SPIRIVA [Suspect]
  4. ADVAIR (SERETIDE /01420901/) [Concomitant]
  5. SINGULAIR [Concomitant]

REACTIONS (2)
  - BACK PAIN [None]
  - DYSPNOEA [None]
